FAERS Safety Report 18101689 (Version 1)
Quarter: 2020Q3

REPORT INFORMATION
  Report Type: Other
  Country: LB (occurrence: LB)
  Receive Date: 20200801
  Receipt Date: 20200801
  Transmission Date: 20201103
  Serious: Yes (Hospitalization)
  Sender: FDA-Public Use
  Company Number: LB-B.BRAUN MEDICAL INC.-2088045

PATIENT
  Age: 25 Year
  Sex: Male

DRUGS (1)
  1. LIDOCAINE HYDROCHLORIDE. [Suspect]
     Active Substance: LIDOCAINE HYDROCHLORIDE
     Indication: LOCAL ANAESTHESIA
     Route: 023

REACTIONS (1)
  - Facial paralysis [None]
